FAERS Safety Report 6629206-8 (Version None)
Quarter: 2010Q1

REPORT INFORMATION
  Report Type: 
  Country: None (occurrence: None)
  Receive Date: 20100311
  Receipt Date: 20090727
  Transmission Date: 20100710
  Serious: No
  Sender: FDA-Public Use
  Company Number: US-BIOGENIDEC-2009BI023476

PATIENT
  Age: 40 Year
  Sex: Female

DRUGS (3)
  1. AVONEX [Suspect]
     Indication: MULTIPLE SCLEROSIS
     Route: 030
     Dates: start: 20000701
  2. AVONEX [Suspect]
     Route: 030
     Dates: end: 20040701
  3. AVONEX [Suspect]
     Route: 030
     Dates: start: 20090612

REACTIONS (2)
  - DISTURBANCE IN ATTENTION [None]
  - MOOD SWINGS [None]
